FAERS Safety Report 6655213-5 (Version None)
Quarter: 2010Q1

REPORT INFORMATION
  Report Type: 
  Country: None (occurrence: None)
  Receive Date: 20100324
  Receipt Date: 20100309
  Transmission Date: 20100710
  Serious: Yes (Disabling)
  Sender: FDA-Public Use
  Company Number: JPI-P-009967

PATIENT
  Age: 38 Year
  Sex: Male
  Weight: 111.1313 kg

DRUGS (4)
  1. XYREM [Suspect]
     Indication: CATAPLEXY
     Dosage: 6 GM (3 GM, 2 IN 1 D), ORAL;  8 GM (4 GM, 2 IN 1 D), ORAL
     Route: 048
     Dates: end: 20100201
  2. XYREM [Suspect]
     Indication: CATAPLEXY
     Dosage: 6 GM (3 GM, 2 IN 1 D), ORAL;  8 GM (4 GM, 2 IN 1 D), ORAL
     Route: 048
     Dates: start: 20081009
  3. FLUTICASONE PROPIONATE [Concomitant]
  4. GABAPENTIN [Concomitant]

REACTIONS (4)
  - CATAPLEXY [None]
  - ECONOMIC PROBLEM [None]
  - PARALYSIS [None]
  - REBOUND EFFECT [None]
